FAERS Safety Report 25984474 (Version 1)
Quarter: 2025Q4

REPORT INFORMATION
  Report Type: Spontaneous
  Country: US (occurrence: US)
  Receive Date: 20251031
  Receipt Date: 20251031
  Transmission Date: 20260117
  Serious: No
  Sender: VERTEX
  Company Number: US-VERTEX PHARMACEUTICALS-2025-017839

PATIENT
  Sex: Male

DRUGS (2)
  1. SUZETRIGINE [Suspect]
     Active Substance: SUZETRIGINE
     Indication: Pain
     Dosage: UNK AS NEEDED
     Route: 048
     Dates: start: 20250430
  2. SUZETRIGINE [Suspect]
     Active Substance: SUZETRIGINE
     Indication: Multiple sclerosis

REACTIONS (4)
  - Blood pressure increased [Not Recovered/Not Resolved]
  - Anxiety [Unknown]
  - Gait inability [Not Recovered/Not Resolved]
  - Off label use [Unknown]

NARRATIVE: CASE EVENT DATE: 20250101
